FAERS Safety Report 26158007 (Version 1)
Quarter: 2025Q4

REPORT INFORMATION
  Report Type: Report from Study
  Country: BY (occurrence: BY)
  Receive Date: 20251215
  Receipt Date: 20251215
  Transmission Date: 20260118
  Serious: Yes (Death)
  Sender: MYLAN
  Company Number: BY-MYLANLABS-2025M1106599

PATIENT
  Age: 45 Year
  Sex: Male
  Weight: 75 kg

DRUGS (6)
  1. PRETOMANID [Suspect]
     Active Substance: PRETOMANID
     Indication: Antibiotic therapy
     Dosage: 200 MILLIGRAM, QD
     Route: 061
     Dates: start: 20240615, end: 20241129
  2. BEDAQUILINE [Suspect]
     Active Substance: BEDAQUILINE
     Indication: Antibiotic therapy
     Dosage: 400 MILLIGRAM, QD
     Route: 061
     Dates: start: 20240615
  3. BEDAQUILINE [Suspect]
     Active Substance: BEDAQUILINE
     Dosage: 200 MILLIGRAM, 3XW (TIW)
     Route: 061
     Dates: end: 20241129
  4. LINEZOLID [Suspect]
     Active Substance: LINEZOLID
     Indication: Antibiotic therapy
     Dosage: 600 MILLIGRAM, QD (FOR 112 DOSES)
     Route: 061
     Dates: start: 20240615
  5. LINEZOLID [Suspect]
     Active Substance: LINEZOLID
     Dosage: 300 MILLIGRAM, QD
     Route: 061
     Dates: end: 20241129
  6. CLOFAZIMINE [Suspect]
     Active Substance: CLOFAZIMINE
     Indication: Antibiotic therapy
     Dosage: 100 MILLIGRAM, QD
     Route: 061
     Dates: start: 20240615, end: 20241129

REACTIONS (2)
  - Aortic aneurysm rupture [Fatal]
  - Hypovolaemic shock [Fatal]

NARRATIVE: CASE EVENT DATE: 20251004
